FAERS Safety Report 23301048 (Version 1)
Quarter: 2023Q4

REPORT INFORMATION
  Report Type: Spontaneous
  Country: US (occurrence: None)
  Receive Date: 20231214
  Receipt Date: 20231214
  Transmission Date: 20240109
  Serious: Yes (Other)
  Sender: FDA-Public Use
  Company Number: None

PATIENT
  Age: 48 Year
  Sex: Female
  Weight: 80.55 kg

DRUGS (2)
  1. PRIALT [Suspect]
     Active Substance: ZICONOTIDE ACETATE
     Indication: Pain
     Dates: start: 20230420
  2. Medtronic^s intrathecal pain pump [Concomitant]

REACTIONS (3)
  - Hallucination, auditory [None]
  - Hallucination, olfactory [None]
  - Paranoia [None]

NARRATIVE: CASE EVENT DATE: 20230525
